FAERS Safety Report 20238095 (Version 1)
Quarter: 2021Q4

REPORT INFORMATION
  Report Type: Report from Study
  Country: IT (occurrence: IT)
  Receive Date: 20211228
  Receipt Date: 20211228
  Transmission Date: 20220304
  Serious: Yes (Other)
  Sender: FDA-Public Use
  Company Number: IT-TEVA-2021-IT-1992638

PATIENT
  Age: 8 Year
  Sex: Male

DRUGS (6)
  1. VINCRISTINE [Suspect]
     Active Substance: VINCRISTINE
     Indication: T-cell type acute leukaemia
     Dosage: RECEIVED FOUR DOSAGES FROM DAY 1 - DAY 33
     Route: 065
  2. DAUNORUBICIN [Suspect]
     Active Substance: DAUNORUBICIN
     Indication: T-cell type acute leukaemia
     Dosage: RECEIVED FOUR DOSAGES FROM DAY 1 - DAY 33
     Route: 065
  3. ASPARAGINASE [Suspect]
     Active Substance: ASPARAGINASE
     Indication: T-cell type acute leukaemia
     Dosage: RECEIVED EIGHT DOSAGES FROM DAY 1 - DAY 33
     Route: 065
  4. MERCAPTOPURINE [Concomitant]
     Active Substance: MERCAPTOPURINE
     Indication: T-cell type acute leukaemia
     Dosage: RECEIVED ONE 28 DAY CYCLE FROM DAY 34 - DAY 78
     Route: 065
  5. CYCLOPHOSPHAMIDE [Concomitant]
     Active Substance: CYCLOPHOSPHAMIDE
     Indication: T-cell type acute leukaemia
     Dosage: RECEIVED TWO DOSAGES FROM DAY 34 - DAY 78
     Route: 065
  6. CYTARABINE [Concomitant]
     Active Substance: CYTARABINE
     Indication: T-cell type acute leukaemia
     Dosage: RECEIVED FOUR 4-DAY CYCLES FROM DAY 34 - DAY 78
     Route: 065

REACTIONS (1)
  - Multiple-drug resistance [Unknown]
